FAERS Safety Report 8091447-3 (Version None)
Quarter: 2012Q1

REPORT INFORMATION
  Report Type: 
  Country: None (occurrence: None)
  Receive Date: 20120129
  Receipt Date: 20111214
  Transmission Date: 20120608
  Serious: No
  Sender: FDA-Public Use
  Company Number: US-ABBOTT-09P-163-0571014-00

PATIENT
  Sex: Male
  Weight: 93.07 kg

DRUGS (5)
  1. HUMIRA [Suspect]
     Indication: RHEUMATOID ARTHRITIS
     Route: 058
     Dates: start: 20060101
  2. OMEPRAZOLE [Concomitant]
     Indication: DYSPEPSIA
  3. RELAFIN [Concomitant]
     Indication: ARTHRITIS
  4. ASPIRIN [Concomitant]
     Indication: ROUTINE HEALTH MAINTENANCE
  5. VITAMIN TAB [Concomitant]
     Indication: VITAMIN SUPPLEMENTATION

REACTIONS (6)
  - OROPHARYNGEAL PAIN [None]
  - NASOPHARYNGITIS [None]
  - PAIN IN EXTREMITY [None]
  - ILL-DEFINED DISORDER [None]
  - DIZZINESS [None]
  - TENDONITIS [None]
